FAERS Safety Report 13700675 (Version 4)
Quarter: 2019Q2

REPORT INFORMATION
  Report Type: Report from Study
  Country: JP (occurrence: JP)
  Receive Date: 20170629
  Receipt Date: 20190612
  Transmission Date: 20190711
  Serious: Yes (Other)
  Sender: FDA-Public Use
  Company Number: JP-OTSUKA-2016_004693AA

PATIENT
  Age: 30 Year
  Sex: Female
  Weight: 44.5 kg

DRUGS (8)
  1. TOLVAPTAN [Suspect]
     Active Substance: TOLVAPTAN
     Dosage: 15 MG, QD, IN THE EVENING
     Route: 048
     Dates: start: 20150409, end: 20150424
  2. TOLVAPTAN [Suspect]
     Active Substance: TOLVAPTAN
     Dosage: 7.5 MG, QD, IN THE EVENING
     Route: 048
     Dates: start: 20150407, end: 20150408
  3. TOLVAPTAN [Suspect]
     Active Substance: TOLVAPTAN
     Dosage: 45 MG, QD, IN THE MORNING
     Route: 048
     Dates: start: 20150425, end: 20151213
  4. TOLVAPTAN [Suspect]
     Active Substance: TOLVAPTAN
     Dosage: 45MG, DAILY DOSE(DIVIDED INTO 2 DOSES)
     Route: 048
     Dates: start: 20151214, end: 20160104
  5. TOLVAPTAN [Suspect]
     Active Substance: TOLVAPTAN
     Indication: CONGENITAL CYSTIC KIDNEY DISEASE
     Dosage: 45 MG/DAY, DIVIDED INTO 2 DOSES
     Route: 048
     Dates: start: 20160118, end: 20160216
  6. TOLVAPTAN [Suspect]
     Active Substance: TOLVAPTAN
     Dosage: 30 MG, QD, IN THE MORNING
     Route: 048
     Dates: start: 20150409, end: 20150424
  7. TOLVAPTAN [Suspect]
     Active Substance: TOLVAPTAN
     Dosage: 15 MG, QD, IN THE EVENING
     Route: 048
     Dates: start: 20150425, end: 20151213
  8. TOLVAPTAN [Suspect]
     Active Substance: TOLVAPTAN
     Dosage: 22.5 MG, QD, IN THE MORNING
     Route: 048
     Dates: start: 20150407, end: 20150408

REACTIONS (3)
  - Liver disorder [Recovered/Resolved]
  - Drug titration error [Unknown]
  - Hepatic function abnormal [Recovering/Resolving]

NARRATIVE: CASE EVENT DATE: 20151214
